FAERS Safety Report 6524634-3 (Version None)
Quarter: 2010Q1

REPORT INFORMATION
  Report Type: 
  Country: None (occurrence: None)
  Receive Date: 20100104
  Receipt Date: 20091224
  Transmission Date: 20100710
  Serious: Yes (Death)
  Sender: FDA-Public Use
  Company Number: US-BAYER-200944041GPV

PATIENT
  Age: 53 Year
  Sex: Male

DRUGS (5)
  1. ASPIRIN [Suspect]
     Dosage: UNIT DOSE: 325 MG
     Route: 048
  2. ATENOLOL [Concomitant]
     Indication: HYPERTENSION
  3. ALPRAZOLAM [Concomitant]
     Indication: DEPRESSION
  4. QUETIAPINE [Concomitant]
     Indication: DEPRESSION
  5. SERTRALINE HCL [Concomitant]
     Indication: DEPRESSION

REACTIONS (1)
  - DRUG TOXICITY [None]
